FAERS Safety Report 18489737 (Version 2)
Quarter: 2020Q4

REPORT INFORMATION
  Report Type: Spontaneous
  Country: CA (occurrence: CA)
  Receive Date: 20201111
  Receipt Date: 20201124
  Transmission Date: 20210114
  Serious: No
  Sender: FDA-Public Use
  Company Number: CA-PFIZER INC-2020443096

PATIENT
  Age: 44 Year
  Sex: Female

DRUGS (1)
  1. SULFASALAZINE. [Suspect]
     Active Substance: SULFASALAZINE
     Dosage: 500 MG
     Route: 065
     Dates: start: 20180418, end: 2018

REACTIONS (2)
  - Drug hypersensitivity [Unknown]
  - Rash [Unknown]
